FAERS Safety Report 7004591-6 (Version None)
Quarter: 2010Q3

REPORT INFORMATION
  Report Type: 
  Country: None (occurrence: None)
  Receive Date: 20100921
  Receipt Date: 20100910
  Transmission Date: 20110219
  Serious: Yes (Hospitalization)
  Sender: FDA-Public Use
  Company Number: BR-ELI_LILLY_AND_COMPANY-BR201009002966

PATIENT
  Sex: Female

DRUGS (7)
  1. FORTEO [Suspect]
     Dosage: UNK, UNKNOWN
     Route: 065
  2. FORTEO [Suspect]
     Dosage: UNK, UNKNOWN
     Route: 065
     Dates: start: 20100910
  3. CARBAMAZEPINA [Concomitant]
     Dosage: UNK, UNKNOWN
     Route: 065
  4. RANITIDINA [Concomitant]
     Dosage: UNK, UNKNOWN
     Route: 065
  5. DICLOFENACO                        /00372302/ [Concomitant]
     Dosage: UNK, UNKNOWN
     Route: 065
  6. METOTREXATO [Concomitant]
     Dosage: UNK, UNKNOWN
     Route: 065
  7. PREDNISOLONE [Concomitant]
     Dosage: UNK, UNKNOWN
     Route: 065

REACTIONS (1)
  - CEREBROVASCULAR ACCIDENT [None]
